FAERS Safety Report 7877652-7 (Version None)
Quarter: 2011Q4

REPORT INFORMATION
  Report Type: 
  Country: None (occurrence: None)
  Receive Date: 20111031
  Receipt Date: 20111031
  Transmission Date: 20120403
  Serious: Yes (Hospitalization, Other)
  Sender: FDA-Public Use
  Company Number: None

PATIENT
  Sex: Female
  Weight: 90.718 kg

DRUGS (2)
  1. MIRENA [Suspect]
     Indication: CONTRACEPTION
     Dosage: CAN'T FIND ON WEBSITE
     Route: 015
     Dates: start: 20110930, end: 20111027
  2. LUPRON DEPOT [Concomitant]
     Indication: ENDOMETRIOSIS
     Dosage: 11.25 MG
     Route: 030
     Dates: start: 20110930, end: 20111027

REACTIONS (2)
  - PROCEDURAL PAIN [None]
  - APPENDICITIS [None]
